FAERS Safety Report 24877011 (Version 1)
Quarter: 2025Q1

REPORT INFORMATION
  Report Type: Spontaneous
  Country: GB (occurrence: GB)
  Receive Date: 20250123
  Receipt Date: 20250123
  Transmission Date: 20250408
  Serious: Yes (Other)
  Sender: Unknown Manufacturer
  Company Number: GB-MHRA-TPP43710409C5836280YC1736902381659

PATIENT
  Age: 40 Year
  Sex: Male
  Weight: 86 kg

DRUGS (5)
  1. METFORMIN [Suspect]
     Active Substance: METFORMIN HYDROCHLORIDE
     Indication: Product used for unknown indication
     Route: 048
     Dates: start: 20241202, end: 20250110
  2. CITALOPRAM [Concomitant]
     Active Substance: CITALOPRAM
     Indication: Ill-defined disorder
     Dates: start: 20241113
  3. CONTOUR PLUS [Concomitant]
     Indication: Ill-defined disorder
     Dates: start: 20241202
  4. LANTUS [Concomitant]
     Active Substance: INSULIN GLARGINE
     Indication: Ill-defined disorder
     Dates: start: 20241202
  5. MICROLET [Concomitant]
     Indication: Ill-defined disorder
     Dates: start: 20241202

REACTIONS (1)
  - Rash [Recovering/Resolving]

NARRATIVE: CASE EVENT DATE: 20241223
